FAERS Safety Report 13761660 (Version 1)
Quarter: 2017Q3

REPORT INFORMATION
  Report Type: Spontaneous
  Country: FR (occurrence: FR)
  Receive Date: 20170718
  Receipt Date: 20170718
  Transmission Date: 20171127
  Serious: Yes (Other)
  Sender: FDA-Public Use
  Company Number: FR-AUROBINDO-AUR-APL-2017-19817

PATIENT
  Age: 47 Year
  Sex: Male

DRUGS (3)
  1. CODEINE+PARACETAMOL [Suspect]
     Active Substance: ACETAMINOPHEN\CODEINE PHOSPHATE
     Indication: TOOTHACHE
     Dosage: 9.5 G, UNK ACETAMINOPHEN COMBINED WITH CODEINE PHOSPHATE/ TRAMADOL/ PROXYPHENE-CAFFEIN OVER 24 HOURS
  2. TRAMADOL + ACETAMINOFEN MK [Suspect]
     Active Substance: ACETAMINOPHEN\TRAMADOL
     Indication: TOOTHACHE
     Dosage: UNK
     Route: 065
  3. ACETAMINOPHEN/PROPOXYPHENE/CAFFEINE [Suspect]
     Active Substance: ACETAMINOPHEN\CAFFEINE\PROPOXYPHENE
     Indication: TOOTHACHE

REACTIONS (5)
  - Accidental overdose [Unknown]
  - Hyperhidrosis [Unknown]
  - Vomiting [Unknown]
  - Nausea [Unknown]
  - Pallor [Unknown]
